FAERS Safety Report 5618495-4 (Version None)
Quarter: 2008Q1

REPORT INFORMATION
  Report Type: 
  Country: None (occurrence: None)
  Receive Date: 20080207
  Receipt Date: 20080206
  Transmission Date: 20080703
  Serious: Yes (Other)
  Sender: FDA-Public Use
  Company Number: B0506720A

PATIENT
  Age: 76 Year
  Sex: Female
  Weight: 68 kg

DRUGS (6)
  1. ROSIGLITAZONE [Suspect]
     Dosage: 4MG PER DAY
     Route: 048
     Dates: start: 20040826, end: 20080107
  2. NICORANDIL [Concomitant]
     Dosage: 20MG PER DAY
     Route: 048
  3. IRBESARTAN [Concomitant]
     Dosage: 75MG PER DAY
     Route: 048
  4. ATORVASTATIN CALCIUM [Concomitant]
     Dosage: 80MG PER DAY
     Route: 048
  5. ASPIRIN [Concomitant]
     Dosage: 75MG PER DAY
     Route: 048
  6. GTN-S [Concomitant]
     Route: 060

REACTIONS (1)
  - ANGINA PECTORIS [None]
